FAERS Safety Report 16146273 (Version 1)
Quarter: 2019Q2

REPORT INFORMATION
  Report Type: Spontaneous
  Country: US (occurrence: US)
  Receive Date: 20190402
  Receipt Date: 20190402
  Transmission Date: 20190711
  Serious: No
  Sender: FDA-Public Use
  Company Number: US-PFIZER INC-2019128521

PATIENT
  Age: 56 Year
  Sex: Female
  Weight: 80.74 kg

DRUGS (1)
  1. CABERGOLINE. [Suspect]
     Active Substance: CABERGOLINE
     Indication: PITUITARY TUMOUR
     Dosage: UNK

REACTIONS (1)
  - Drug ineffective [Unknown]
